FAERS Safety Report 4301961-1 (Version None)
Quarter: 2004Q1

REPORT INFORMATION
  Report Type: 
  Country: None (occurrence: None)
  Receive Date: 20040220
  Receipt Date: 20040212
  Transmission Date: 20041129
  Serious: Yes (Other)
  Sender: FDA-Public Use
  Company Number: 200410743BCC

PATIENT
  Age: 19 Year
  Sex: Female

DRUGS (1)
  1. BACTINE [Suspect]
     Dates: start: 20040112

REACTIONS (1)
  - EYE IRRITATION [None]
